FAERS Safety Report 10219817 (Version 2)
Quarter: 2014Q2

REPORT INFORMATION
  Report Type: Spontaneous
  Country: US (occurrence: US)
  Receive Date: 20140605
  Receipt Date: 20140626
  Transmission Date: 20141212
  Serious: No
  Sender: FDA-Public Use
  Company Number: US-PFIZER INC-2014153429

PATIENT
  Sex: Male

DRUGS (1)
  1. DETROL [Suspect]
     Indication: HYPERTONIC BLADDER
     Dosage: 4 MG, DAILY

REACTIONS (1)
  - Drug effect incomplete [Unknown]
